FAERS Safety Report 25104347 (Version 1)
Quarter: 2025Q1

REPORT INFORMATION
  Report Type: Report from Study
  Country: US (occurrence: US)
  Receive Date: 20250321
  Receipt Date: 20250321
  Transmission Date: 20250408
  Serious: Yes (Other)
  Sender: MYLAN
  Company Number: US-MYLANLABS-2025M1023095

PATIENT
  Age: 75 Month
  Sex: Female

DRUGS (7)
  1. ETOPOSIDE [Suspect]
     Active Substance: ETOPOSIDE
     Indication: Medulloblastoma recurrent
  2. ETOPOSIDE [Suspect]
     Active Substance: ETOPOSIDE
     Indication: Medulloblastoma recurrent
  3. IRINOTECAN [Suspect]
     Active Substance: IRINOTECAN
     Indication: Medulloblastoma recurrent
  4. CYCLOPHOSPHAMIDE [Suspect]
     Active Substance: CYCLOPHOSPHAMIDE
     Indication: Medulloblastoma recurrent
  5. TEMOZOLOMIDE [Suspect]
     Active Substance: TEMOZOLOMIDE
     Indication: Medulloblastoma recurrent
     Dosage: 150 MG/M2/DOSE ON DAY 1-5 IN 28 DAYS CYCLE
  6. CARBOPLATIN [Suspect]
     Active Substance: CARBOPLATIN
     Indication: Medulloblastoma recurrent
  7. THIOTEPA [Suspect]
     Active Substance: THIOTEPA
     Indication: Medulloblastoma recurrent

REACTIONS (6)
  - Febrile neutropenia [Unknown]
  - Myelosuppression [Unknown]
  - Infection [Unknown]
  - Drug ineffective [Unknown]
  - Disease progression [Unknown]
  - Off label use [Unknown]
